FAERS Safety Report 18960845 (Version 1)
Quarter: 2021Q1

REPORT INFORMATION
  Report Type: Spontaneous
  Country: JP (occurrence: JP)
  Receive Date: 20210302
  Receipt Date: 20210302
  Transmission Date: 20210420
  Serious: Yes (Other)
  Sender: FDA-Public Use
  Company Number: JP-FERRINGPH-2021FE01266

PATIENT
  Age: 80 Year
  Sex: Male

DRUGS (1)
  1. GONAX [Suspect]
     Active Substance: DEGARELIX
     Indication: PROSTATE CANCER
     Dosage: UNK, EVERY 4 WEEKS
     Route: 058

REACTIONS (3)
  - Abdominal distension [Unknown]
  - Myocardial infarction [Unknown]
  - Pyrexia [Unknown]
